FAERS Safety Report 8206960-5 (Version None)
Quarter: 2012Q1

REPORT INFORMATION
  Report Type: 
  Country: None (occurrence: None)
  Receive Date: 20120312
  Receipt Date: 20120227
  Transmission Date: 20120608
  Serious: Yes (Hospitalization)
  Sender: FDA-Public Use
  Company Number: ESP-CLT-2012004

PATIENT
  Sex: Male

DRUGS (6)
  1. FOLIC ACID [Concomitant]
  2. VITAMIN B-12 [Concomitant]
  3. CYSTADANE [Suspect]
     Indication: HOMOCYSTINURIA
     Dosage: 1 200 MG EVERY DAY, 6 G EVERY DAY, 7 G EVERY DAY, ORAL
     Route: 048
     Dates: start: 20070628, end: 20090826
  4. CYSTADANE [Suspect]
     Indication: HOMOCYSTINURIA
     Dosage: 1 200 MG EVERY DAY, 6 G EVERY DAY, 7 G EVERY DAY, ORAL
     Route: 048
     Dates: start: 20100901, end: 20110823
  5. CYSTADANE [Suspect]
     Indication: HOMOCYSTINURIA
     Dosage: 1 200 MG EVERY DAY, 6 G EVERY DAY, 7 G EVERY DAY, ORAL
     Route: 048
     Dates: start: 20090827, end: 20100831
  6. L-CARNITINE [Concomitant]

REACTIONS (5)
  - BLOOD HOMOCYSTEINE INCREASED [None]
  - PARAPARESIS [None]
  - INCORRECT DOSE ADMINISTERED [None]
  - NEUROPATHY PERIPHERAL [None]
  - MYELOPATHY [None]
